FAERS Safety Report 14389716 (Version 1)
Quarter: 2018Q1

REPORT INFORMATION
  Report Type: Spontaneous
  Country: PL (occurrence: PL)
  Receive Date: 20180115
  Receipt Date: 20180115
  Transmission Date: 20180509
  Serious: Yes (Other)
  Sender: FDA-Public Use
  Company Number: PL-009507513-1801POL002706

PATIENT
  Age: 60 Year
  Sex: Male
  Weight: 80 kg

DRUGS (16)
  1. ZOCOR [Suspect]
     Active Substance: SIMVASTATIN
     Dosage: 20 MG, QD
     Route: 048
  2. CIPRONEX [Suspect]
     Active Substance: CIPROFLOXACIN
     Dosage: 400 MG, QOD
     Route: 042
     Dates: start: 20140207, end: 20140212
  3. BIODACYNA [Suspect]
     Active Substance: AMIKACIN SULFATE
     Dosage: UNK MG, UNK
     Route: 042
     Dates: start: 20140211, end: 20140212
  4. CLEXANE (ENOXAPARIN SODIUM) [Suspect]
     Active Substance: ENOXAPARIN SODIUM
     Dosage: DOSE: 80MG/0.8ML
     Route: 058
  5. LOZAP (LOSARTAN POTASSIUM) [Suspect]
     Active Substance: LOSARTAN POTASSIUM
     Dosage: 50 MG, QOD
     Route: 048
  6. FUROSEMIDE. [Suspect]
     Active Substance: FUROSEMIDE
     Dosage: 50 MG, UNK
     Route: 042
  7. PYRALGIN [Suspect]
     Active Substance: DIPYRONE
     Dosage: 1.25 G, Q4D
     Route: 042
     Dates: start: 20140205, end: 20140212
  8. DIUVER [Suspect]
     Active Substance: TORSEMIDE
     Dosage: 5 MG, UNK
     Route: 048
  9. ACC (ACETYLCYSTEINE) [Suspect]
     Active Substance: ACETYLCYSTEINE
     Dosage: 300 MG, QOD; STRENGTH: 300 MG/3 ML
     Route: 042
  10. WARFIN [Suspect]
     Active Substance: WARFARIN
     Route: 042
     Dates: start: 20140211, end: 20140212
  11. KALIUM (POTASSIUM ADIPATE) [Suspect]
     Active Substance: POTASSIUM ADIPATE
     Dosage: 3 G, Q3D
     Route: 048
     Dates: start: 20140207, end: 20140212
  12. KALIPOZ PROLONGATUM TABLETKI [Suspect]
     Active Substance: POTASSIUM CHLORIDE
     Dosage: 2250 MG
     Route: 048
  13. BERODUAL [Suspect]
     Active Substance: FENOTEROL HYDROBROMIDE\IPRATROPIUM BROMIDE
     Route: 055
  14. BETALOC ZOK [Suspect]
     Active Substance: METOPROLOL SUCCINATE
     Dosage: 50 MG, UNK
     Route: 048
  15. ATROVENT [Suspect]
     Active Substance: IPRATROPIUM BROMIDE
     Route: 055
  16. THEOSPIREX (THEOPHYLLINE) [Suspect]
     Active Substance: THEOPHYLLINE ANHYDROUS
     Dosage: 100 MG, UNK
     Route: 042
     Dates: start: 20140210, end: 20140212

REACTIONS (5)
  - Dizziness [Recovered/Resolved]
  - Asthenia [Recovered/Resolved]
  - Dyspnoea [Recovered/Resolved]
  - Bradycardia [Recovered/Resolved]
  - Blood pressure decreased [Recovered/Resolved]

NARRATIVE: CASE EVENT DATE: 20140212
